FAERS Safety Report 10983618 (Version 1)
Quarter: 2015Q2

REPORT INFORMATION
  Report Type: Report from Study
  Country: AU (occurrence: AU)
  Receive Date: 20150403
  Receipt Date: 20150403
  Transmission Date: 20150821
  Serious: Yes (Hospitalization, Other)
  Sender: FDA-Public Use
  Company Number: AU-BRISTOL-MYERS SQUIBB COMPANY-20552014

PATIENT
  Age: 65 Year
  Sex: Male
  Weight: 79 kg

DRUGS (5)
  1. METHYLPREDNISOLONE. [Concomitant]
     Active Substance: METHYLPREDNISOLONE
  2. IPILIMUMAB [Suspect]
     Active Substance: IPILIMUMAB
     Indication: METASTATIC MALIGNANT MELANOMA
     Route: 042
  3. SOMAC [Concomitant]
     Active Substance: PANTOPRAZOLE SODIUM
     Dosage: UNK
     Dates: start: 20140125
  4. CEFTRIAXONE. [Concomitant]
     Active Substance: CEFTRIAXONE
  5. NIVOLUMAB [Suspect]
     Active Substance: NIVOLUMAB
     Indication: METASTATIC MALIGNANT MELANOMA
     Dosage: 1 DF:L OR 3MG/KG,  EVERY 2 OR 3 WEEKS
     Route: 042
     Dates: start: 20140109

REACTIONS (1)
  - Glomerulonephritis [Recovered/Resolved]

NARRATIVE: CASE EVENT DATE: 20140319
